FAERS Safety Report 5635773-3 (Version None)
Quarter: 2008Q1

REPORT INFORMATION
  Report Type: 
  Country: None (occurrence: None)
  Receive Date: 20080221
  Receipt Date: 20080206
  Transmission Date: 20080703
  Serious: Yes (Other)
  Sender: FDA-Public Use
  Company Number: S08-UKI-00606-01

PATIENT
  Age: 50 Year
  Sex: Female
  Weight: 70.7 kg

DRUGS (9)
  1. CITALOPRAM HYDROBROMIDE [Suspect]
     Indication: ANXIETY
     Dates: start: 20071214, end: 20080117
  2. CITALOPRAM HYDROBROMIDE [Suspect]
     Indication: DEPRESSION
     Dates: start: 20071214, end: 20080117
  3. CITALOPRAM HYDROBROMIDE [Suspect]
     Indication: ANXIETY
     Dates: start: 20080118
  4. CITALOPRAM HYDROBROMIDE [Suspect]
     Indication: DEPRESSION
     Dates: start: 20080118
  5. ATENOLOL [Concomitant]
  6. DOTHIEPIN HYDROCHLORIDE [Concomitant]
  7. INDAPAMIDE [Concomitant]
  8. NOVORAPID (INSULIN ASPART) [Concomitant]
  9. RAMIPRIL [Concomitant]

REACTIONS (2)
  - BLOOD GLUCOSE INCREASED [None]
  - DIABETES MELLITUS INADEQUATE CONTROL [None]
